FAERS Safety Report 25702706 (Version 1)
Quarter: 2025Q3

REPORT INFORMATION
  Report Type: Spontaneous
  Country: IN (occurrence: IN)
  Receive Date: 20250819
  Receipt Date: 20250819
  Transmission Date: 20251021
  Serious: Yes (Other)
  Sender: PURDUE
  Company Number: IN-NAPPMUNDI-GBR-2025-0128079

PATIENT
  Age: 3 Decade
  Sex: Female
  Weight: 74 kg

DRUGS (2)
  1. BUPRENORPHINE [Suspect]
     Active Substance: BUPRENORPHINE
     Indication: Pain
     Route: 065
  2. MORPHINE [Suspect]
     Active Substance: MORPHINE
     Indication: Pain
     Route: 042

REACTIONS (8)
  - Perineal ulceration [Unknown]
  - Dyspnoea [Unknown]
  - Therapeutic product effect incomplete [Unknown]
  - Maternal exposure during pregnancy [Unknown]
  - Insomnia [Unknown]
  - Mobility decreased [Unknown]
  - Oedema peripheral [Unknown]
  - Varicose veins vulval [Unknown]
